FAERS Safety Report 6772745-X (Version None)
Quarter: 2010Q2

REPORT INFORMATION
  Report Type: 
  Country: None (occurrence: None)
  Receive Date: 20100616
  Receipt Date: 20100611
  Transmission Date: 20101027
  Serious: Yes (Life-Threatening)
  Sender: FDA-Public Use
  Company Number: Z0002413A

PATIENT
  Sex: Female
  Weight: 91 kg

DRUGS (1)
  1. OFATUMUMAB [Suspect]
     Route: 042
     Dates: start: 20091125

REACTIONS (1)
  - ANAPHYLACTIC REACTION [None]
